FAERS Safety Report 9735312 (Version 1)
Quarter: 2013Q4

REPORT INFORMATION
  Report Type: Spontaneous
  Country: CA (occurrence: CA)
  Receive Date: 20131206
  Receipt Date: 20131206
  Transmission Date: 20140711
  Serious: Yes (Death, Other)
  Sender: FDA-Public Use
  Company Number: CA-PFIZER INC-2013346478

PATIENT
  Age: 56 Year
  Sex: Male

DRUGS (19)
  1. ALTACE [Suspect]
     Dosage: 10 MG, UNK
     Route: 048
  2. EFFEXOR XR [Suspect]
     Dosage: 150 MG, DAILY
     Route: 065
  3. CRESTOR [Suspect]
     Dosage: 20 MG, DAILY
     Route: 048
  4. HYDROCHLOROTHIAZIDE [Suspect]
     Dosage: 50 MG, DAILY
     Route: 065
  5. ELTROXIN [Suspect]
     Dosage: 100 MG, DAILY
  6. KALETRA [Suspect]
     Dosage: 3 DF, UNK
     Route: 048
  7. QVAR [Suspect]
     Dosage: 200 MG, UNK
     Route: 065
  8. TRUVADA [Suspect]
     Dosage: 200 MG, UNK
     Route: 065
  9. IPRATROPIUM BROMIDE/SALBUTAMOL [Concomitant]
  10. LAMOTRIGINE [Concomitant]
     Dosage: UNK
  11. POTASSIUM CHLORIDE [Concomitant]
     Dosage: UNK
  12. DARUNAVIR [Concomitant]
     Dosage: UNK
  13. PROCARBAZINE [Concomitant]
     Dosage: UNK
  14. RABEPRAZOLE [Concomitant]
     Dosage: UNK
  15. RANITIDINE [Concomitant]
     Dosage: UNK
  16. ROSUVASTATIN [Concomitant]
     Dosage: UNK
  17. SEREVENT DISKUS [Concomitant]
     Dosage: UNK
  18. VALPROATE SEMISODIUM [Concomitant]
     Dosage: UNK
  19. RITONAVIR [Concomitant]
     Dosage: UNK

REACTIONS (3)
  - Asthma [Fatal]
  - Benign prostatic hyperplasia [Fatal]
  - Hepatic cancer [Fatal]
